FAERS Safety Report 21390163 (Version 1)
Quarter: 2022Q3

REPORT INFORMATION
  Report Type: Spontaneous
  Country: US (occurrence: None)
  Receive Date: 20220929
  Receipt Date: 20220929
  Transmission Date: 20221027
  Serious: Yes (Other)
  Sender: FDA-Public Use
  Company Number: US-Hikma Pharmaceuticals USA Inc.-US-H14001-22-02451

PATIENT
  Sex: Female

DRUGS (2)
  1. DESVENLAFAXINE [Suspect]
     Active Substance: DESVENLAFAXINE
     Indication: Product used for unknown indication
     Route: 048
  2. DESVENLAFAXINE [Suspect]
     Active Substance: DESVENLAFAXINE
     Route: 048
     Dates: start: 20220917

REACTIONS (7)
  - Palpitations [Recovered/Resolved]
  - Hyperhidrosis [Recovered/Resolved]
  - Dyspnoea [Recovered/Resolved]
  - Euphoric mood [Recovered/Resolved]
  - Psychomotor hyperactivity [Recovered/Resolved]
  - Inappropriate affect [Recovered/Resolved]
  - Incorrect dose administered [Unknown]
